FAERS Safety Report 7482656-2 (Version None)
Quarter: 2011Q2

REPORT INFORMATION
  Report Type: 
  Country: None (occurrence: None)
  Receive Date: 20110516
  Receipt Date: 20110509
  Transmission Date: 20111010
  Serious: Yes (Death, Hospitalization)
  Sender: FDA-Public Use
  Company Number: PHHO2010FR06347

PATIENT
  Sex: Male
  Weight: 64 kg

DRUGS (6)
  1. ALLOPURINOL [Concomitant]
  2. FUROSEMIDE [Concomitant]
     Dosage: UNK
  3. GLEEVEC [Suspect]
     Indication: GASTROINTESTINAL CARCINOMA
     Dosage: 400 MG, BID
     Route: 048
     Dates: start: 20100407, end: 20100414
  4. METFORMIN HCL [Suspect]
  5. LEVOTHYROXINE SODIUM [Concomitant]
  6. CYCLOPHOSPHAMIDE [Concomitant]

REACTIONS (5)
  - PNEUMONIA [None]
  - VOMITING [None]
  - OVERDOSE [None]
  - NEOPLASM MALIGNANT [None]
  - RENAL FAILURE ACUTE [None]
